FAERS Safety Report 6671359-X (Version None)
Quarter: 2010Q2

REPORT INFORMATION
  Report Type: 
  Country: None (occurrence: None)
  Receive Date: 20100407
  Receipt Date: 20100330
  Transmission Date: 20101027
  Serious: Yes (Other)
  Sender: FDA-Public Use
  Company Number: A0851850A

PATIENT
  Sex: Male
  Weight: 68.8 kg

DRUGS (6)
  1. KIVEXA [Suspect]
     Indication: HIV INFECTION
     Dosage: 1TAB PER DAY
     Route: 048
     Dates: start: 20100318, end: 20100324
  2. VIREAD [Suspect]
     Indication: HIV INFECTION
     Dosage: 1TAB PER DAY
     Route: 048
     Dates: start: 20100318, end: 20100324
  3. KALETRA [Concomitant]
     Indication: HIV INFECTION
     Route: 048
     Dates: start: 20080603
  4. SAQUINAVIR [Concomitant]
     Indication: HIV INFECTION
     Dosage: 1000MG TWICE PER DAY
     Route: 048
     Dates: start: 20080701
  5. CELEXA [Concomitant]
     Indication: DEPRESSION
     Dosage: 20MG PER DAY
     Route: 065
     Dates: start: 20091007
  6. TIMOLOL [Concomitant]
     Indication: GLAUCOMA
     Dosage: 1DROP PER DAY
     Route: 065
     Dates: start: 20091007

REACTIONS (6)
  - ABNORMAL SENSATION IN EYE [None]
  - DIZZINESS [None]
  - EYE SWELLING [None]
  - OEDEMA PERIPHERAL [None]
  - PARAESTHESIA [None]
  - RASH ERYTHEMATOUS [None]
